FAERS Safety Report 6618833-X (Version None)
Quarter: 2010Q1

REPORT INFORMATION
  Report Type: 
  Country: None (occurrence: None)
  Receive Date: 20100305
  Receipt Date: 20100305
  Transmission Date: 20100710
  Serious: Yes (Other)
  Sender: FDA-Public Use
  Company Number: None

PATIENT
  Sex: Male
  Weight: 27.2 kg

DRUGS (1)
  1. FOCALIN [Suspect]
     Indication: ATTENTION DEFICIT/HYPERACTIVITY DISORDER
     Dosage: 1 1/2 TABS QAM AND NOON PO
     Route: 048
     Dates: start: 20091104, end: 20100304

REACTIONS (3)
  - SPEECH DISORDER [None]
  - TONGUE DISORDER [None]
  - TONGUE PARALYSIS [None]
